FAERS Safety Report 5897874-4 (Version None)
Quarter: 2008Q3

REPORT INFORMATION
  Report Type: 
  Country: None (occurrence: None)
  Receive Date: 20080925
  Receipt Date: 20080925
  Transmission Date: 20090109
  Serious: Yes (Other)
  Sender: FDA-Public Use
  Company Number: A0749215A

PATIENT
  Age: 52 Year
  Sex: Female
  Weight: 63 kg

DRUGS (2)
  1. ALLI [Suspect]
     Route: 048
     Dates: start: 20080901
  2. VICODIN [Concomitant]
     Dates: start: 20080923

REACTIONS (4)
  - ABDOMINAL DISCOMFORT [None]
  - FAECES DISCOLOURED [None]
  - RECTAL HAEMORRHAGE [None]
  - STEATORRHOEA [None]
